FAERS Safety Report 10256639 (Version 1)
Quarter: 2014Q2

REPORT INFORMATION
  Report Type: Spontaneous
  Country: FR (occurrence: FR)
  Receive Date: 20140624
  Receipt Date: 20140624
  Transmission Date: 20141212
  Serious: Yes (Hospitalization)
  Sender: FDA-Public Use
  Company Number: FR-009507513-1406FRA010219

PATIENT
  Age: 74 Year
  Sex: Male

DRUGS (5)
  1. AERIUS [Suspect]
     Indication: RHINITIS ALLERGIC
     Dosage: 5 MG, QD
     Route: 048
     Dates: end: 20131125
  2. SEROPLEX [Suspect]
     Indication: DEPRESSION
     Dosage: 10 MG, QD
     Route: 048
     Dates: end: 20131125
  3. FUCIDINE [Suspect]
     Indication: PYREXIA
     Dosage: UNK
     Route: 048
     Dates: start: 20131121, end: 20131125
  4. INEXIUM (ESOMEPRAZOLE MAGNESIUM) [Concomitant]
     Indication: PRODUCT USED FOR UNKNOWN INDICATION
     Dosage: 20 MG, QD
     Route: 048
     Dates: end: 20131125
  5. INEXIUM (ESOMEPRAZOLE MAGNESIUM) [Concomitant]
     Dosage: 20 MG, QD
     Dates: start: 20131203

REACTIONS (4)
  - Rash maculo-papular [Recovered/Resolved]
  - Pyrexia [Recovered/Resolved]
  - Eosinophilia [Recovered/Resolved]
  - Rash erythematous [Recovered/Resolved]
